FAERS Safety Report 8938512 (Version 1)
Quarter: 2012Q4

REPORT INFORMATION
  Report Type: 
  Country: JP (occurrence: JP)
  Receive Date: 20121203
  Receipt Date: 20121203
  Transmission Date: 20130627
  Serious: Yes (Death, Other)
  Sender: FDA-Public Use
  Company Number: PHHY2012JP084625

PATIENT
  Sex: Male

DRUGS (2)
  1. TEGRETOL [Suspect]
     Route: 048
  2. ANTIBIOTICS [Concomitant]

REACTIONS (2)
  - Gastrointestinal haemorrhage [Fatal]
  - Liver disorder [Unknown]
